FAERS Safety Report 22628489 (Version 1)
Quarter: 2023Q2

REPORT INFORMATION
  Report Type: Spontaneous
  Country: CN (occurrence: CN)
  Receive Date: 20230622
  Receipt Date: 20230622
  Transmission Date: 20230722
  Serious: Yes (Death, Other)
  Sender: FDA-Public Use
  Company Number: CN-PFIZER INC-PV202300107060

PATIENT
  Age: 62 Year
  Sex: Male

DRUGS (22)
  1. EPIRUBICIN HYDROCHLORIDE [Suspect]
     Active Substance: EPIRUBICIN HYDROCHLORIDE
     Indication: B-cell lymphoma
     Dosage: 1ST CYCLEOF CHOP (60 MG, DAY1 AND DAY8)
     Route: 042
     Dates: start: 20100713
  2. EPIRUBICIN HYDROCHLORIDE [Suspect]
     Active Substance: EPIRUBICIN HYDROCHLORIDE
     Dosage: 2ND CYCLE OF R-CHOP (60 MG, DAY1 AND DAY8)
     Route: 042
     Dates: start: 20100807
  3. EPIRUBICIN HYDROCHLORIDE [Suspect]
     Active Substance: EPIRUBICIN HYDROCHLORIDE
     Dosage: 3RD CYCLE OF R-CHOP (60 MG, DAY1 AND DAY8)
     Route: 042
     Dates: start: 20100830
  4. EPIRUBICIN HYDROCHLORIDE [Suspect]
     Active Substance: EPIRUBICIN HYDROCHLORIDE
     Dosage: 4 TH CYCLE OF R-CHOP (60 MG, DAY1 AND DAY8)
     Route: 042
     Dates: start: 20100923
  5. CYCLOPHOSPHAMIDE [Concomitant]
     Active Substance: CYCLOPHOSPHAMIDE
     Indication: B-cell lymphoma
     Dosage: 1ST CYCLE OF CHOP (0.8 G, DAY1 AND DAY8)
     Route: 042
     Dates: start: 20100713
  6. CYCLOPHOSPHAMIDE [Concomitant]
     Active Substance: CYCLOPHOSPHAMIDE
     Dosage: 2ND CYCLE OF R-CHOP (0.8 G, DAY1 AND DAY8)
     Route: 042
     Dates: start: 20100807
  7. CYCLOPHOSPHAMIDE [Concomitant]
     Active Substance: CYCLOPHOSPHAMIDE
     Dosage: 3RD CYCLE OF R-CHOP (0.8 G, DAY1 AND DAY8)
     Route: 042
     Dates: start: 20100830
  8. CYCLOPHOSPHAMIDE [Concomitant]
     Active Substance: CYCLOPHOSPHAMIDE
     Dosage: 4 TH CYCLE OF R-CHOP (0.8 G, DAY1 AND DAY8)
     Route: 042
     Dates: start: 20100923
  9. VINCRISTINE [Concomitant]
     Active Substance: VINCRISTINE
     Indication: B-cell lymphoma
     Dosage: 1ST CYCLE OF CHOP (2 MG, DAY 1)
     Route: 042
     Dates: start: 20100713
  10. VINCRISTINE [Concomitant]
     Active Substance: VINCRISTINE
     Dosage: 2ND CYCLE OF R-CHOP (2 MG, DAY 1)
     Route: 042
     Dates: start: 20100807
  11. VINCRISTINE [Concomitant]
     Active Substance: VINCRISTINE
     Dosage: 3RD CYCLE OF R-CHOP (2 MG, DAY 1)
     Route: 042
     Dates: start: 20100830
  12. VINCRISTINE [Concomitant]
     Active Substance: VINCRISTINE
     Dosage: 4TH CYCLE OF R-CHOP (2 MG, DAY 1)
     Route: 042
     Dates: start: 20100923
  13. PREDNISONE [Concomitant]
     Active Substance: PREDNISONE
     Indication: B-cell lymphoma
     Dosage: 1ST CYCLE OF CHOP (60 MG, DAILY, DAY1 TO DAY8)
     Route: 048
     Dates: start: 20100713
  14. PREDNISONE [Concomitant]
     Active Substance: PREDNISONE
     Dosage: 2ND CYCLE OF R-CHOP (60 MG, DAILY, DAY1 TO DAY8)
     Route: 048
     Dates: start: 20100807
  15. PREDNISONE [Concomitant]
     Active Substance: PREDNISONE
     Dosage: 3RD CYCLE OF R-CHOP (60 MG, DAILY, DAY1 TO DAY8)
     Route: 048
     Dates: start: 20100830
  16. PREDNISONE [Concomitant]
     Active Substance: PREDNISONE
     Dosage: 4TH CYCLE OF R-CHOP (60 MG, DAILY, DAY1 TO DAY8)
     Route: 048
     Dates: start: 20100923
  17. RITUXIMAB [Concomitant]
     Active Substance: RITUXIMAB
     Dosage: R-CHOP (375 MG/M2, EVERY 3 WEEKS)
     Route: 041
     Dates: start: 20100713
  18. RITUXIMAB [Concomitant]
     Active Substance: RITUXIMAB
     Dosage: 3RD CYCLE OF R-CHOP (375 MG/M2, EVERY 3 WEEKS)
     Route: 041
     Dates: start: 20100830
  19. RITUXIMAB [Concomitant]
     Active Substance: RITUXIMAB
     Dosage: 4TH CYCLE OF R-CHOP (375 MG/M2, EVERY 3 WEEKS)
     Route: 041
     Dates: start: 20100923
  20. CIMETIDINE [Concomitant]
     Active Substance: CIMETIDINE
     Indication: Allergy prophylaxis
     Dosage: 0.6 G,ADMINISTERED BEFORE RITUXIMAB
     Route: 041
  21. DEXAMETHASONE [Concomitant]
     Active Substance: DEXAMETHASONE
     Indication: Allergy prophylaxis
     Dosage: 10 MG,0.6 G,ADMINISTERED BEFORE RITUXIMAB
     Route: 042
  22. DIPHENHYDRAMINE [Concomitant]
     Active Substance: DIPHENHYDRAMINE
     Indication: Allergy prophylaxis
     Dosage: 40 MG,ADMINISTERED BEFORE RITUXIMAB
     Route: 030

REACTIONS (4)
  - Respiratory failure [Fatal]
  - Interstitial lung disease [Fatal]
  - Myelosuppression [Recovered/Resolved]
  - Off label use [Unknown]

NARRATIVE: CASE EVENT DATE: 20101013
